FAERS Safety Report 4337223-6 (Version None)
Quarter: 2004Q2

REPORT INFORMATION
  Report Type: 
  Country: None (occurrence: None)
  Receive Date: 20040402
  Receipt Date: 20030421
  Transmission Date: 20050107
  Serious: Yes (Hospitalization)
  Sender: FDA-Public Use
  Company Number: INDT-PR-0304S-0003 (0)

PATIENT
  Age: 77 Year
  Sex: Male

DRUGS (15)
  1. INDIUM- 111 DTPA INJ [Suspect]
     Indication: NORMAL PRESSURE HYDROCEPHALUS
     Dosage: 22.2 MBQ, SINGLE, DOSE, I.T.
     Route: 037
     Dates: start: 20030417, end: 20030417
  2. NEURONTIN [Concomitant]
  3. PROSCAR [Concomitant]
  4. LANSOPRAZOLE SR (PREVACID) [Concomitant]
  5. MECLIZINE [Concomitant]
  6. CLOPIDOGREL BISULFATE (PLAVIX) [Concomitant]
  7. LASIX [Concomitant]
  8. DESLORATADINE (CLARINEX) [Concomitant]
  9. LIPITOR [Concomitant]
  10. TRAMADOL HCL / ACETAMINOPHEN (ULTRACET) [Concomitant]
  11. AMLODIPINE BESYLATE (NORVASC) [Concomitant]
  12. ALLOPURINOL [Concomitant]
  13. PROPRANOLOL HCL [Concomitant]
  14. SODIUM POLYSTYRENE SULFONATE [Concomitant]
  15. OXYCODONE / ACETAMINOPHEN (PERCOCET) [Concomitant]

REACTIONS (1)
  - MENINGITIS BACTERIAL [None]
